FAERS Safety Report 11940348 (Version 1)
Quarter: 2016Q1

REPORT INFORMATION
  Report Type: Spontaneous
  Country: US (occurrence: US)
  Receive Date: 20160122
  Receipt Date: 20160122
  Transmission Date: 20160526
  Serious: Yes (Other)
  Sender: FDA-Public Use
  Company Number: US-PFIZER INC-2016021473

PATIENT
  Age: 92 Year
  Sex: Female
  Weight: 65.77 kg

DRUGS (1)
  1. PREPARATION H CREAM MAX STRENGTH [Suspect]
     Active Substance: GLYCERIN\PETROLATUM\PHENYLEPHRINE HYDROCHLORIDE\PRAMOXINE HYDROCHLORIDE
     Indication: HAEMORRHOIDAL HAEMORRHAGE
     Dosage: EVERY TIME I BLEED, EVERY TIME I GO TO THE BATHROOM

REACTIONS (5)
  - Bedridden [Unknown]
  - Haemorrhage [Not Recovered/Not Resolved]
  - Weight decreased [Unknown]
  - Drug ineffective [Unknown]
  - Malaise [Unknown]

NARRATIVE: CASE EVENT DATE: 201512
